FAERS Safety Report 15019525 (Version 1)
Quarter: 2018Q2

REPORT INFORMATION
  Report Type: Spontaneous
  Country: US (occurrence: US)
  Receive Date: 20180617
  Receipt Date: 20180617
  Transmission Date: 20180711
  Serious: Yes (Other)
  Sender: FDA-Public Use
  Company Number: US-ALEXION PHARMACEUTICALS INC.-A201807327

PATIENT
  Age: 71 Year
  Sex: Female

DRUGS (5)
  1. BACTRIM [Concomitant]
     Active Substance: SULFAMETHOXAZOLE\TRIMETHOPRIM
     Indication: PROPHYLAXIS
     Dosage: UNK,UNK
     Route: 065
  2. SOLIRIS [Suspect]
     Active Substance: ECULIZUMAB
     Indication: RENAL TRANSPLANT
     Dosage: 900 MG,QW
     Route: 042
  3. SOLIRIS [Suspect]
     Active Substance: ECULIZUMAB
     Indication: OFF LABEL USE
     Dosage: 1200 MG, Q2W
     Route: 042
  4. PREDNISONE. [Concomitant]
     Active Substance: PREDNISONE
     Indication: PRODUCT USED FOR UNKNOWN INDICATION
     Dosage: UNK,UNK
     Route: 065
  5. PENICILLIN VK [Concomitant]
     Active Substance: PENICILLIN V POTASSIUM
     Indication: PRODUCT USED FOR UNKNOWN INDICATION
     Dosage: 500 MG, UNTIL 4 WEEKS AFTER LAST SOLIRIS DOSE
     Route: 065

REACTIONS (5)
  - Renal tubular necrosis [Unknown]
  - Clostridium difficile infection [Unknown]
  - Delayed graft function [Unknown]
  - Acute myocardial infarction [Unknown]
  - Cytomegalovirus viraemia [Recovered/Resolved]
